FAERS Safety Report 9092701 (Version 1)
Quarter: 2013Q1

REPORT INFORMATION
  Report Type: Report from Study
  Country: US (occurrence: US)
  Receive Date: 20130218
  Receipt Date: 20130218
  Transmission Date: 20140127
  Serious: No
  Sender: FDA-Public Use
  Company Number: US-ABBOTT-13P-163-1035313-00

PATIENT
  Sex: Male
  Weight: 106.69 kg

DRUGS (5)
  1. SIMCOR 500/20 [Suspect]
     Indication: BLOOD TRIGLYCERIDES INCREASED
     Dosage: 500/40MG EVERY NIGHT
     Dates: start: 201206
  2. ASPIRIN [Concomitant]
     Indication: PRODUCT USED FOR UNKNOWN INDICATION
  3. LISINOPRIL [Concomitant]
     Indication: BLOOD PRESSURE
     Dosage: BLOOD PRESSURE MEDICINE
  4. UNKNOWN BLOOD PRESSURE MEDICINE THAT STARTS WITH AN M [Concomitant]
     Indication: BLOOD PRESSURE
     Dosage: DRUG NAME STARTS WITH M; BUT NOT SURE OF NAME.
  5. EFFIENT [Concomitant]
     Indication: PRODUCT USED FOR UNKNOWN INDICATION

REACTIONS (3)
  - Flushing [Recovered/Resolved]
  - Feeling hot [Recovered/Resolved]
  - Paraesthesia [Recovered/Resolved]
